FAERS Safety Report 6211133-1 (Version None)
Quarter: 2009Q2

REPORT INFORMATION
  Report Type: 
  Country: None (occurrence: None)
  Receive Date: 20090529
  Receipt Date: 20090518
  Transmission Date: 20091009
  Serious: Yes (Hospitalization, Other)
  Sender: FDA-Public Use
  Company Number: 2009AP001807

PATIENT
  Age: 44 Year
  Sex: Female

DRUGS (5)
  1. DILTIAZEM HCL [Suspect]
  2. PSYLLIUM [Concomitant]
  3. ENALAPRIL MALEATE [Suspect]
  4. CLOZAPINE [Suspect]
     Dosage: SEE IMAGE
  5. CLONIDINE [Suspect]

REACTIONS (4)
  - ABDOMINAL SEPSIS [None]
  - FATIGUE [None]
  - INTESTINAL OBSTRUCTION [None]
  - MENTAL STATUS CHANGES [None]
